FAERS Safety Report 15232689 (Version 1)
Quarter: 2018Q3

REPORT INFORMATION
  Report Type: Spontaneous
  Country: US (occurrence: US)
  Receive Date: 20180802
  Receipt Date: 20180802
  Transmission Date: 20181010
  Serious: No
  Sender: FDA-Public Use
  Company Number: US-MYLANLABS-2018M1054747

PATIENT
  Sex: Male
  Weight: 68 kg

DRUGS (1)
  1. FENTANYL TRANSDERMAL SYSTEM [Suspect]
     Active Substance: FENTANYL
     Indication: CROHN^S DISEASE
     Dosage: 100 ?G, QD
     Route: 062

REACTIONS (5)
  - Product quality issue [Not Recovered/Not Resolved]
  - Off label use [Unknown]
  - Wrong technique in product usage process [Not Recovered/Not Resolved]
  - Hyperhidrosis [Unknown]
  - Product adhesion issue [Not Recovered/Not Resolved]
